FAERS Safety Report 5840421-3 (Version None)
Quarter: 2008Q3

REPORT INFORMATION
  Report Type: 
  Country: None (occurrence: None)
  Receive Date: 20080807
  Receipt Date: 20080807
  Transmission Date: 20090109
  Serious: Yes (Hospitalization)
  Sender: FDA-Public Use
  Company Number: None

PATIENT
  Sex: Female
  Weight: 51.5 kg

DRUGS (3)
  1. CISPLATIN [Suspect]
     Dosage: 170 MG
  2. DOXORUBICIN HCL [Suspect]
     Dosage: 110 MG
  3. METHOTREXATE [Suspect]
     Dosage: 17500 MG

REACTIONS (3)
  - GALLOP RHYTHM PRESENT [None]
  - HAEMORRHOIDS [None]
  - RECTAL HAEMORRHAGE [None]
